FAERS Safety Report 12221339 (Version 1)
Quarter: 2016Q1

REPORT INFORMATION
  Report Type: Spontaneous
  Country: US (occurrence: None)
  Receive Date: 20160329
  Receipt Date: 20160329
  Transmission Date: 20160526
  Serious: Yes (Other)
  Sender: FDA-Public Use
  Company Number: None

PATIENT
  Age: 6 Year
  Sex: Male
  Weight: 19.5 kg

DRUGS (5)
  1. TAMIFLU [Suspect]
     Active Substance: OSELTAMIVIR PHOSPHATE
     Indication: INFLUENZA
     Dosage: 7.5 MLS TWIICE A DAY TAKEN BY MOUTH
     Route: 048
     Dates: start: 20160326, end: 20160326
  2. ALBUTEROL INHALER [Concomitant]
     Active Substance: ALBUTEROL
  3. QVAR INHALER [Concomitant]
  4. TYLENOL [Concomitant]
     Active Substance: ACETAMINOPHEN
  5. ADVIL [Concomitant]
     Active Substance: IBUPROFEN

REACTIONS (4)
  - Hallucination [None]
  - Delusion [None]
  - Sleep disorder [None]
  - Seizure [None]

NARRATIVE: CASE EVENT DATE: 20160326
